FAERS Safety Report 10714811 (Version 2)
Quarter: 2015Q1

REPORT INFORMATION
  Report Type: Spontaneous
  Country: US (occurrence: US)
  Receive Date: 20150115
  Receipt Date: 20150119
  Transmission Date: 20150721
  Serious: Yes (Death, Other)
  Sender: FDA-Public Use
  Company Number: US-GLAXOSMITHKLINE-US2015GSK002025

PATIENT
  Age: 70 Year
  Sex: Male

DRUGS (3)
  1. CARBON MONOXIDE [Suspect]
     Active Substance: CARBON MONOXIDE
     Dosage: UNK
  2. DILTIAZEM [Suspect]
     Active Substance: DILTIAZEM
  3. BUPROPION [Suspect]
     Active Substance: BUPROPION

REACTIONS (2)
  - Environmental exposure [Fatal]
  - Death [Fatal]
